FAERS Safety Report 5055113-0 (Version None)
Quarter: 2006Q3

REPORT INFORMATION
  Report Type: 
  Country: None (occurrence: None)
  Receive Date: 20060719
  Receipt Date: 20060526
  Transmission Date: 20061208
  Serious: No
  Sender: FDA-Public Use
  Company Number: US-AMGEN-US181026

PATIENT
  Sex: Female

DRUGS (2)
  1. EPOGEN [Suspect]
     Indication: DIALYSIS
     Route: 042
     Dates: start: 20051001
  2. EPOGEN [Suspect]
     Route: 042
     Dates: start: 20060324, end: 20060417

REACTIONS (1)
  - THERAPEUTIC RESPONSE DECREASED [None]
